FAERS Safety Report 11208230 (Version 1)
Quarter: 2015Q2

REPORT INFORMATION
  Report Type: Spontaneous
  Country: US (occurrence: US)
  Receive Date: 20150622
  Receipt Date: 20150622
  Transmission Date: 20150821
  Serious: Yes (Other)
  Sender: FDA-Public Use
  Company Number: US-CIPLA LTD.-2015US04856

PATIENT

DRUGS (6)
  1. GEMCITABINE [Suspect]
     Active Substance: GEMCITABINE\GEMCITABINE HYDROCHLORIDE
     Indication: NEOPLASM
  2. CISPLATIN. [Suspect]
     Active Substance: CISPLATIN
     Indication: NON-SMALL CELL LUNG CANCER
     Dosage: 80MGM2 ON DAY 1 FOLLOWED BY A 1-WEEK REST PERIOD, IN 3-WEEK CYCLES
     Route: 065
  3. GEMCITABINE [Suspect]
     Active Substance: GEMCITABINE\GEMCITABINE HYDROCHLORIDE
     Indication: NON-SMALL CELL LUNG CANCER
     Dosage: 1250 MGM2 ON DAYS 1 AND 8, 30-MIN INFUSION FOLLOWED BY A 1-WEEK REST PERIOD, IN 3-WEEK CYCLES
  4. CISPLATIN. [Suspect]
     Active Substance: CISPLATIN
     Indication: NEOPLASM
  5. AXITINIB [Suspect]
     Active Substance: AXITINIB
     Indication: NON-SMALL CELL LUNG CANCER
     Dosage: 5 MG, BID
     Route: 048
  6. AXITINIB [Suspect]
     Active Substance: AXITINIB
     Indication: NEOPLASM

REACTIONS (1)
  - Palmar-plantar erythrodysaesthesia syndrome [Unknown]
